FAERS Safety Report 9143176 (Version 1)
Quarter: 2013Q1

REPORT INFORMATION
  Report Type: Spontaneous
  Country: US (occurrence: US)
  Receive Date: 20130306
  Receipt Date: 20130306
  Transmission Date: 20140127
  Serious: No
  Sender: FDA-Public Use
  Company Number: US-ENDO PHARMACEUTICALS INC.-OPER20110040

PATIENT
  Sex: Male

DRUGS (2)
  1. OPANA ER 20MG [Suspect]
     Indication: ARTHRITIS
     Dosage: 20 MG
     Route: 048
     Dates: start: 201012
  2. UNSPECIFIED HERBS [Suspect]
     Indication: PRODUCT USED FOR UNKNOWN INDICATION
     Dosage: UNKNOWN
     Route: 065

REACTIONS (2)
  - Hepatic enzyme increased [Not Recovered/Not Resolved]
  - Drug ineffective [Not Recovered/Not Resolved]
